FAERS Safety Report 7907206-5 (Version None)
Quarter: 2011Q4

REPORT INFORMATION
  Report Type: 
  Country: None (occurrence: None)
  Receive Date: 20111110
  Receipt Date: 20111104
  Transmission Date: 20120403
  Serious: Yes (Death, Other)
  Sender: FDA-Public Use
  Company Number: FI-CELGENEUS-055-50794-11110537

PATIENT
  Age: 66 Year
  Sex: Male

DRUGS (1)
  1. VIDAZA [Suspect]
     Dosage: 75 MILLIGRAM/SQ. METER
     Route: 065

REACTIONS (3)
  - DEATH [None]
  - COUGH [None]
  - LUNG INFILTRATION [None]
